FAERS Safety Report 9157463 (Version 1)
Quarter: 2013Q1

REPORT INFORMATION
  Report Type: Spontaneous
  Country: DE (occurrence: None)
  Receive Date: 20130213
  Receipt Date: 20130213
  Transmission Date: 20140127
  Serious: Yes (Other)
  Sender: FDA-Public Use
  Company Number: GER/GER/13/0027842

PATIENT
  Age: 70 Year
  Sex: Male
  Weight: 84 kg

DRUGS (3)
  1. SIMVASTATIN (SIMVASTATIN) [Suspect]
     Indication: CORONARY ARTERY DISEASE
     Route: 048
     Dates: start: 2004
  2. ASS 100 (ACETYLSALICYLIC ACID) [Concomitant]
  3. RAMPRIL (RAMPRIL) [Concomitant]

REACTIONS (2)
  - Neuropathy peripheral [None]
  - Muscle contractions involuntary [None]
